FAERS Safety Report 22603923 (Version 2)
Quarter: 2024Q4

REPORT INFORMATION
  Report Type: Report from Study
  Country: CA (occurrence: CA)
  Receive Date: 20230615
  Receipt Date: 20241022
  Transmission Date: 20250114
  Serious: No
  Sender: ROCHE
  Company Number: CA-ROCHE-3368600

PATIENT
  Sex: Male

DRUGS (3)
  1. OCREVUS [Suspect]
     Active Substance: OCRELIZUMAB
     Indication: Relapsing-remitting multiple sclerosis
     Dosage: 300 MG AT DAY 0 AND 14, THEN 600 MG EVERY 6 MONTH
     Route: 042
     Dates: start: 20181205
  2. NABIXIMOLS [Concomitant]
     Active Substance: NABIXIMOLS
  3. BACLOFEN [Concomitant]
     Active Substance: BACLOFEN

REACTIONS (2)
  - Muscle spasticity [Not Recovered/Not Resolved]
  - COVID-19 [Recovered/Resolved with Sequelae]
